FAERS Safety Report 10012045 (Version 1)
Quarter: 2014Q1

REPORT INFORMATION
  Report Type: Spontaneous
  Country: US (occurrence: None)
  Receive Date: 20140313
  Receipt Date: 20140313
  Transmission Date: 20141002
  Serious: Yes (Other)
  Sender: FDA-Public Use
  Company Number: None

PATIENT
  Sex: 0

DRUGS (2)
  1. DABIGATRAN [Suspect]
  2. ALLOPURINOL [Suspect]

REACTIONS (2)
  - Drug interaction [None]
  - Haemorrhage [None]
